FAERS Safety Report 10597316 (Version 7)
Quarter: 2025Q2

REPORT INFORMATION
  Report Type: Report from Study
  Country: JP (occurrence: JP)
  Receive Date: 20141121
  Receipt Date: 20250404
  Transmission Date: 20250717
  Serious: Yes (Life-Threatening, Disabling, Other)
  Sender: ALEXION PHARMACEUTICALS
  Company Number: JP-ALEXION PHARMACEUTICALS INC-A201403059

PATIENT
  Age: 63 Year

DRUGS (7)
  1. SOLIRIS [Suspect]
     Active Substance: ECULIZUMAB
     Indication: Atypical haemolytic uraemic syndrome
     Dosage: 900 MG, QW
  2. SOLIRIS [Suspect]
     Active Substance: ECULIZUMAB
     Dosage: UNK, Q2W
  3. SOLIRIS [Suspect]
     Active Substance: ECULIZUMAB
  4. NORVASC [Concomitant]
     Active Substance: AMLODIPINE BESYLATE
     Indication: Hypertension
     Dosage: 5 MG, QD
  5. BROTIZOLAM [Concomitant]
     Active Substance: BROTIZOLAM
     Indication: Insomnia
     Dosage: 0.25 MG, QD
  6. VFEND [Concomitant]
     Active Substance: VORICONAZOLE
     Indication: Infection
     Dosage: 100 MG, QD
  7. PREDNISOLONE [Concomitant]
     Active Substance: PREDNISOLONE
     Indication: Sjogren^s syndrome
     Dosage: 40 MG, QD

REACTIONS (9)
  - Pulmonary alveolar haemorrhage [Recovered/Resolved]
  - Embolism [Not Recovered/Not Resolved]
  - Purpura [Not Recovered/Not Resolved]
  - Gangrene [Not Recovered/Not Resolved]
  - Incorrect dose administered [Unknown]
  - Pharyngitis [Recovering/Resolving]
  - Drug ineffective [Unknown]
  - Insomnia [Not Recovered/Not Resolved]
  - White blood cell count decreased [Recovered/Resolved]
